FAERS Safety Report 10021909 (Version 2)
Quarter: 2014Q2

REPORT INFORMATION
  Report Type: Other
  Country: GB (occurrence: GB)
  Receive Date: 20140319
  Receipt Date: 20140402
  Transmission Date: 20141212
  Serious: Yes (Other)
  Sender: FDA-Public Use
  Company Number: GB-PERRIGO-14GB002818

PATIENT
  Age: 32 Year
  Sex: Female

DRUGS (5)
  1. IBUPROFEN 16028/0027 200 MG [Suspect]
     Indication: SPONDYLITIS
     Dosage: 800 MG, UNK
     Route: 065
     Dates: end: 20140225
  2. NAPROXEN 250MG 16028/0144 [Suspect]
     Indication: SPONDYLITIS
     Dosage: 1 G, UNK
     Route: 065
     Dates: end: 20140225
  3. SIMPONI [Suspect]
     Indication: PRODUCT USED FOR UNKNOWN INDICATION
     Dosage: UNK
     Route: 058
     Dates: start: 20140114
  4. CO-CODAMOL [Concomitant]
     Indication: PRODUCT USED FOR UNKNOWN INDICATION
     Dosage: UNK
     Route: 065
  5. LANSOPRAZOL [Concomitant]
     Indication: PRODUCT USED FOR UNKNOWN INDICATION
     Dosage: 30 G, QD
     Route: 065

REACTIONS (11)
  - Haematochezia [Unknown]
  - Convulsion [Unknown]
  - Abdominal pain [Unknown]
  - Loss of consciousness [Unknown]
  - Diarrhoea [Unknown]
  - Vomiting [Unknown]
  - Anti-transglutaminase antibody increased [Unknown]
  - Neutrophil count abnormal [Unknown]
  - Serum ferritin abnormal [Unknown]
  - White blood cell count increased [Unknown]
  - Irritable bowel syndrome [Unknown]
